FAERS Safety Report 23564029 (Version 1)
Quarter: 2024Q1

REPORT INFORMATION
  Report Type: Spontaneous
  Country: IT (occurrence: IT)
  Receive Date: 20240226
  Receipt Date: 20240226
  Transmission Date: 20240409
  Serious: Yes (Hospitalization)
  Sender: FDA-Public Use
  Company Number: None

PATIENT

DRUGS (1)
  1. SYLVANT [Suspect]
     Active Substance: SILTUXIMAB
     Indication: Castleman^s disease
     Dosage: 880 MG/ 3 SETT (11 MG/KG) EVERY 1 CYCLE
     Route: 042
     Dates: start: 20231108, end: 20231108

REACTIONS (2)
  - Lymphadenopathy [Recovering/Resolving]
  - Skin oedema [Recovering/Resolving]

NARRATIVE: CASE EVENT DATE: 20231108
